FAERS Safety Report 20856115 (Version 1)
Quarter: 2022Q2

REPORT INFORMATION
  Report Type: Spontaneous
  Country: JP (occurrence: JP)
  Receive Date: 20220520
  Receipt Date: 20220520
  Transmission Date: 20220721
  Serious: Yes (Other)
  Sender: FDA-Public Use
  Company Number: JP-MLMSERVICE-20220504-3537033-1

PATIENT
  Sex: Female

DRUGS (4)
  1. GEMCITABINE HYDROCHLORIDE [Suspect]
     Active Substance: GEMCITABINE HYDROCHLORIDE
     Indication: Acinar cell carcinoma of pancreas
     Dosage: 3000 MG/M2, CYCLICAL
     Route: 065
  2. GEMCITABINE HYDROCHLORIDE [Suspect]
     Active Substance: GEMCITABINE HYDROCHLORIDE
     Indication: Pancreatic carcinoma recurrent
  3. PACLITAXEL [Suspect]
     Active Substance: PACLITAXEL
     Indication: Acinar cell carcinoma of pancreas
     Dosage: 375 MG/M2, CYCLICAL
     Route: 065
  4. PACLITAXEL [Suspect]
     Active Substance: PACLITAXEL
     Indication: Pancreatic carcinoma recurrent

REACTIONS (5)
  - Neuropathy peripheral [Unknown]
  - Myelosuppression [Unknown]
  - Fatigue [Unknown]
  - Diarrhoea [Unknown]
  - Alopecia [Unknown]
